FAERS Safety Report 4906411-X (Version None)
Quarter: 2006Q1

REPORT INFORMATION
  Report Type: 
  Country: None (occurrence: None)
  Receive Date: 20060206
  Receipt Date: 20060120
  Transmission Date: 20060701
  Serious: Yes (Other)
  Sender: FDA-Public Use
  Company Number: UK165455

PATIENT
  Age: 7 Year
  Sex: Female

DRUGS (2)
  1. KINERET [Suspect]
     Indication: JUVENILE ARTHRITIS
  2. CORTICOSTEROID NOS [Concomitant]

REACTIONS (8)
  - ERYTHEMA [None]
  - HYPERSENSITIVITY [None]
  - INFECTION [None]
  - OEDEMA PERIPHERAL [None]
  - PRURITUS [None]
  - SKIN LESION [None]
  - TONGUE DISORDER [None]
  - URTICARIA GENERALISED [None]
